FAERS Safety Report 13544930 (Version 1)
Quarter: 2017Q2

REPORT INFORMATION
  Report Type: Spontaneous
  Country: US (occurrence: US)
  Receive Date: 20170515
  Receipt Date: 20170515
  Transmission Date: 20170830
  Serious: No
  Sender: FDA-Public Use
  Company Number: US-GLAXOSMITHKLINE-US2017069690

PATIENT
  Age: 26 Year
  Sex: Male

DRUGS (1)
  1. FLONASE [Suspect]
     Active Substance: FLUTICASONE PROPIONATE
     Indication: HYPERSENSITIVITY
     Dosage: UNK
     Dates: start: 20170506, end: 20170507

REACTIONS (5)
  - Skin reaction [Not Recovered/Not Resolved]
  - Pain of skin [Unknown]
  - Pruritus [Unknown]
  - Erythema [Recovering/Resolving]
  - Acne [Not Recovered/Not Resolved]

NARRATIVE: CASE EVENT DATE: 20170506
